FAERS Safety Report 6824640-5 (Version None)
Quarter: 2010Q3

REPORT INFORMATION
  Report Type: 
  Country: None (occurrence: None)
  Receive Date: 20100708
  Receipt Date: 20070124
  Transmission Date: 20110219
  Serious: No
  Sender: FDA-Public Use
  Company Number: US-PFIZER INC-2006140592

PATIENT
  Age: 54 Year
  Sex: Female
  Weight: 55.34 kg

DRUGS (6)
  1. CHANTIX [Suspect]
     Indication: EX-TOBACCO USER
     Dates: start: 20060101, end: 20060101
  2. NICOTROL [Suspect]
     Indication: EX-TOBACCO USER
     Dates: start: 20060101, end: 20060101
  3. LEVOXYL [Concomitant]
  4. ATIVAN [Concomitant]
  5. PROTONIX [Concomitant]
  6. LEXAPRO [Concomitant]

REACTIONS (6)
  - COUGH [None]
  - DRUG INEFFECTIVE [None]
  - FATIGUE [None]
  - HOT FLUSH [None]
  - NIGHT SWEATS [None]
  - THROAT IRRITATION [None]
